FAERS Safety Report 10586145 (Version 1)
Quarter: 2014Q4

REPORT INFORMATION
  Report Type: Spontaneous
  Country: CN (occurrence: CN)
  Receive Date: 20141115
  Receipt Date: 20141115
  Transmission Date: 20150529
  Serious: Yes (Death, Other)
  Sender: FDA-Public Use
  Company Number: PHHY2014CN147742

PATIENT
  Age: 21 Year
  Sex: Female

DRUGS (7)
  1. CYCLOPHOSPHAMID [Concomitant]
     Active Substance: CYCLOPHOSPHAMIDE
     Indication: PROPHYLAXIS
     Dosage: 60 MG/KG, FOR 2 DAYS
     Route: 065
  2. MYCOPHENOLATE MOFETIL. [Suspect]
     Active Substance: MYCOPHENOLATE MOFETIL
     Indication: PROPHYLAXIS AGAINST GRAFT VERSUS HOST DISEASE
     Dosage: 0.5 G, BID, AT 7TH DAY AFTER TRANSPLANTION
     Route: 048
  3. ARA-C [Concomitant]
     Active Substance: CYTARABINE
     Indication: PROPHYLAXIS
     Route: 048
  4. METHOTREXATE [Suspect]
     Active Substance: METHOTREXATE
     Indication: PROPHYLAXIS AGAINST GRAFT VERSUS HOST DISEASE
     Dosage: 15 MG/M2, AT 1ST DAY
     Route: 048
  5. CICLOSPORIN [Suspect]
     Active Substance: CYCLOSPORINE
     Indication: PROPHYLAXIS AGAINST GRAFT VERSUS HOST DISEASE
     Dosage: 10 MG/KG, QD
     Route: 048
  6. VP-16 [Concomitant]
     Active Substance: ETOPOSIDE
     Indication: PROPHYLAXIS
     Dosage: 40 MG/KG, UNK
     Route: 065
  7. METHOTREXATE [Suspect]
     Active Substance: METHOTREXATE
     Dosage: 10 MG/M2, AT 3RD, 6TH, 11TH DAYS AFTER TRANSPLANTION
     Route: 048

REACTIONS (2)
  - Petit mal epilepsy [Unknown]
  - Acute graft versus host disease in intestine [Fatal]
